FAERS Safety Report 14004529 (Version 2)
Quarter: 2019Q1

REPORT INFORMATION
  Report Type: Spontaneous
  Country: GB (occurrence: GB)
  Receive Date: 20170922
  Receipt Date: 20190307
  Transmission Date: 20190417
  Serious: Yes (Death, Hospitalization, Other)
  Sender: FDA-Public Use
  Company Number: GB-ACCORD-058764

PATIENT
  Age: 59 Year
  Sex: Male

DRUGS (4)
  1. RITUXIMAB. [Suspect]
     Active Substance: RITUXIMAB
     Indication: MANTLE CELL LYMPHOMA
     Dosage: DOSAGE FORM: UNKNOWN
     Route: 065
  2. CYTARABINE/CYTARABINE HYDROCHLORIDE/CYTARABINE OCFOSFATE [Suspect]
     Active Substance: CYTARABINE
     Indication: MANTLE CELL LYMPHOMA
     Dosage: DOSAGE FORM: UNKNOWN
     Route: 065
  3. BENDAMUSTINE/BENDAMUSTINE HYDROCHLORIDE [Suspect]
     Active Substance: BENDAMUSTINE HYDROCHLORIDE
     Indication: MANTLE CELL LYMPHOMA
     Dosage: DOSAGE FORM: UNSPECIFIED
     Route: 065
  4. IBRUTINIB [Suspect]
     Active Substance: IBRUTINIB
     Indication: MANTLE CELL LYMPHOMA
     Dosage: ALSO RECEIVED 560 MG FROM 05-AUG-2015 TO 16-FEB-2016 AND  FROM 24-FEB-2016 TO 20-APR-2016
     Route: 048
     Dates: start: 201508, end: 201602

REACTIONS (5)
  - Lower respiratory tract infection [Unknown]
  - Drug ineffective [Unknown]
  - Off label use [Unknown]
  - Mantle cell lymphoma [Fatal]
  - Human rhinovirus test positive [Unknown]

NARRATIVE: CASE EVENT DATE: 2015
